FAERS Safety Report 10578117 (Version 1)
Quarter: 2014Q4

REPORT INFORMATION
  Report Type: Spontaneous
  Country: NL (occurrence: NL)
  Receive Date: 20141112
  Receipt Date: 20141112
  Transmission Date: 20150529
  Serious: Yes (Other)
  Sender: FDA-Public Use
  Company Number: NL-AUROBINDO-AUR-APL-2014-11822

PATIENT
  Age: 33 Year
  Sex: Female

DRUGS (9)
  1. SERTRALINE 50MG [Interacting]
     Active Substance: SERTRALINE HYDROCHLORIDE
     Indication: MENTAL DISORDER
     Dosage: 50 MG, ONCE A DAY
     Route: 065
     Dates: start: 20130221
  2. HYDROCOBAMINE [Concomitant]
     Active Substance: HYDROXOCOBALAMIN HYDROCHLORIDE
     Indication: PRODUCT USED FOR UNKNOWN INDICATION
     Dosage: 1 DF, EVERY 6 WEEKS
     Route: 065
     Dates: start: 20140327
  3. HYDROCHLOROTHIAZID [Concomitant]
     Active Substance: HYDROCHLOROTHIAZIDE
     Indication: PRODUCT USED FOR UNKNOWN INDICATION
     Dosage: 12.5 MG, ONCE A DAY
     Route: 065
     Dates: start: 20140825
  4. QUETIAPINE 25MG [Suspect]
     Active Substance: QUETIAPINE
     Indication: MENTAL DISORDER
     Dosage: 25 MG, ONCE A DAY
     Route: 065
     Dates: start: 20091106
  5. COLECALCIFEROL [Concomitant]
     Active Substance: CHOLECALCIFEROL
     Indication: PRODUCT USED FOR UNKNOWN INDICATION
     Dosage: 1 DF, EVERY WEEK
     Route: 065
     Dates: start: 20110315
  6. PANTOPRAZOLE [Concomitant]
     Active Substance: PANTOPRAZOLE SODIUM
     Indication: PRODUCT USED FOR UNKNOWN INDICATION
     Dosage: 40 MG, ONCE A DAY
     Route: 065
     Dates: start: 20140825
  7. DICLOFENAC SODIUM. [Concomitant]
     Active Substance: DICLOFENAC SODIUM
     Indication: PRODUCT USED FOR UNKNOWN INDICATION
     Dosage: 50 MG, 3 TIMES A DAY
     Route: 065
     Dates: start: 20140825
  8. TRAMADOL 50MG [Interacting]
     Active Substance: TRAMADOL
     Indication: PAIN
     Dosage: 50 MG, 3 TIMES A DAY
     Route: 065
     Dates: start: 20140831, end: 20141002
  9. FERROFUMARAT [Concomitant]
     Indication: PRODUCT USED FOR UNKNOWN INDICATION
     Dosage: 200 MG, ONCE A DAY
     Route: 065
     Dates: start: 20091102

REACTIONS (9)
  - Confusional state [Recovering/Resolving]
  - Agitation [Recovering/Resolving]
  - Fear [Recovering/Resolving]
  - Amnesia [Recovering/Resolving]
  - Restlessness [Recovering/Resolving]
  - Drug interaction [Recovering/Resolving]
  - Serotonin syndrome [Recovering/Resolving]
  - Heart rate increased [Recovering/Resolving]
  - Depressed level of consciousness [Recovering/Resolving]

NARRATIVE: CASE EVENT DATE: 20140903
